FAERS Safety Report 6138359-X (Version None)
Quarter: 2009Q1

REPORT INFORMATION
  Report Type: 
  Country: None (occurrence: None)
  Receive Date: 20090331
  Receipt Date: 20090331
  Transmission Date: 20090719
  Serious: Yes (Hospitalization, Other)
  Sender: FDA-Public Use
  Company Number: US-PFIZER INC-2005090865

PATIENT
  Sex: Female
  Weight: 59.874 kg

DRUGS (3)
  1. CELEBREX [Suspect]
     Indication: ARTHRALGIA
     Dosage: 200 MG, 1X/DAY
     Route: 048
     Dates: end: 20080101
  2. NEXIUM [Concomitant]
     Route: 048
  3. SYNTHROID [Concomitant]

REACTIONS (14)
  - ANAEMIA [None]
  - BACK PAIN [None]
  - BODY HEIGHT DECREASED [None]
  - DIARRHOEA [None]
  - DRUG INEFFECTIVE [None]
  - FALL [None]
  - FOOT FRACTURE [None]
  - GASTROINTESTINAL HAEMORRHAGE [None]
  - GROIN PAIN [None]
  - HYPERTENSION [None]
  - IRRITABLE BOWEL SYNDROME [None]
  - OEDEMA PERIPHERAL [None]
  - SPINAL COMPRESSION FRACTURE [None]
  - SPINAL DISORDER [None]
